FAERS Safety Report 17462559 (Version 1)
Quarter: 2020Q1

REPORT INFORMATION
  Report Type: Spontaneous
  Country: US (occurrence: US)
  Receive Date: 20200226
  Receipt Date: 20200226
  Transmission Date: 20200409
  Serious: Yes (Other)
  Sender: FDA-Public Use
  Company Number: None

PATIENT
  Age: 60 Year
  Sex: Male
  Weight: 108 kg

DRUGS (1)
  1. LUMASON [Suspect]
     Active Substance: SULFUR HEXAFLUORIDE
     Dosage: ?          OTHER FREQUENCY:ONETIME;?
     Route: 040
     Dates: start: 20200211, end: 20200211

REACTIONS (4)
  - Back pain [None]
  - Bradycardia [None]
  - Rash [None]
  - Hypotension [None]

NARRATIVE: CASE EVENT DATE: 20200213
